FAERS Safety Report 6182922-7 (Version None)
Quarter: 2009Q2

REPORT INFORMATION
  Report Type: 
  Country: None (occurrence: None)
  Receive Date: 20090507
  Receipt Date: 20090429
  Transmission Date: 20091009
  Serious: Yes (Hospitalization, Other)
  Sender: FDA-Public Use
  Company Number: US-ELI_LILLY_AND_COMPANY-US200904006951

PATIENT
  Sex: Female

DRUGS (2)
  1. FORTEO [Suspect]
     Dosage: UNK, UNK
     Dates: start: 20070101, end: 20070101
  2. FORTEO [Suspect]
     Dates: start: 20080801

REACTIONS (3)
  - INTESTINAL OBSTRUCTION [None]
  - OESOPHAGEAL DISORDER [None]
  - OESOPHAGEAL PERFORATION [None]
